FAERS Safety Report 24427218 (Version 4)
Quarter: 2024Q4

REPORT INFORMATION
  Report Type: Spontaneous
  Country: US (occurrence: US)
  Receive Date: 20241011
  Receipt Date: 20241129
  Transmission Date: 20250115
  Serious: No
  Sender: PFIZER
  Company Number: US-PFIZER INC-202400269163

PATIENT
  Age: 3 Year
  Sex: Female
  Weight: 18.8 kg

DRUGS (3)
  1. GENOTROPIN [Suspect]
     Active Substance: SOMATROPIN
     Indication: Prader-Willi syndrome
     Dosage: 0.6 MG, DAILY
     Route: 058
     Dates: start: 2021
  2. GENOTROPIN [Suspect]
     Active Substance: SOMATROPIN
     Indication: Blood growth hormone
  3. CARNITINE [Concomitant]
     Active Substance: CARNITINE
     Indication: Muscle strength abnormal
     Dosage: 2 MIS 3X^S DAILY

REACTIONS (2)
  - Device breakage [Recovered/Resolved]
  - Device material issue [Recovered/Resolved]
